FAERS Safety Report 8418128 (Version 17)
Quarter: 2013Q2

REPORT INFORMATION
  Report Type: Report from Study
  Country: CZ (occurrence: CZ)
  Receive Date: 20120221
  Receipt Date: 20130531
  Transmission Date: 20140414
  Serious: Yes (Hospitalization, Other)
  Sender: FDA-Public Use
  Company Number: CZ-ASTRAZENECA-2012SE09656

PATIENT
  Age: 24067 Day
  Sex: Male

DRUGS (46)
  1. AZD6140 [Suspect]
     Indication: CORONARY ARTERY DISEASE
     Route: 048
     Dates: start: 20111123, end: 20111208
  2. ANOPYRIN [Suspect]
     Route: 048
     Dates: end: 20111212
  3. HYDROCHLOROTIAZIDE [Suspect]
     Indication: HYPERTENSION
     Route: 048
     Dates: end: 20111207
  4. AMILORIDE [Suspect]
     Indication: HYPERTENSION
     Route: 048
     Dates: end: 20111207
  5. PENTOXIFYLLIN [Concomitant]
     Indication: DIABETIC VASCULAR DISORDER
     Route: 048
     Dates: end: 20111208
  6. DORZOLAMIDUM [Concomitant]
     Indication: DIABETIC RETINOPATHY
     Route: 047
  7. ATORVASTATIN [Concomitant]
     Indication: HYPERLIPIDAEMIA
     Route: 048
     Dates: end: 20111212
  8. ATORVASTATIN [Concomitant]
     Indication: HYPERLIPIDAEMIA
     Route: 048
     Dates: start: 20120524
  9. BISOPROLOL [Concomitant]
     Indication: MYOCARDIAL INFARCTION
     Route: 048
     Dates: end: 20111212
  10. INSULINUM GLULISINUM [Concomitant]
     Indication: TYPE 2 DIABETES MELLITUS
     Route: 058
  11. INSULINUM GLARGINUM [Concomitant]
     Indication: TYPE 2 DIABETES MELLITUS
     Route: 058
  12. LOSARTAN [Concomitant]
     Indication: HYPERTENSION
     Route: 048
     Dates: end: 20111206
  13. LOSARTAN [Concomitant]
     Indication: HYPERTENSION
     Route: 048
     Dates: start: 20120317, end: 20120601
  14. FENOFIBRAT [Concomitant]
     Indication: HYPERLIPIDAEMIA
     Route: 048
     Dates: end: 20111208
  15. BIMATOPROSTUM [Concomitant]
     Indication: DIABETIC RETINOPATHY
     Route: 047
  16. AMLODIPIN [Concomitant]
     Indication: HYPERTENSION
     Route: 048
     Dates: end: 20111208
  17. PERINDOPRIL [Concomitant]
     Indication: HYPERTENSION
     Route: 048
     Dates: end: 20111208
  18. TIMOLOL [Concomitant]
     Indication: DIABETIC RETINOPATHY
     Route: 047
  19. ALLOPURINOL [Concomitant]
     Indication: HYPERURICAEMIA
     Route: 048
     Dates: end: 20111212
  20. NORADRENALIN [Concomitant]
     Indication: HYPOTENSION
     Route: 042
     Dates: start: 20111210, end: 20111215
  21. NORADRENALIN [Concomitant]
     Indication: SEPSIS
     Route: 042
     Dates: start: 20111210, end: 20111215
  22. NORADRENALIN [Concomitant]
     Indication: HYPOTENSION
     Route: 042
     Dates: start: 20121231, end: 20130112
  23. NORADRENALIN [Concomitant]
     Indication: SEPSIS
     Route: 042
     Dates: start: 20121231, end: 20130112
  24. DOBUTAMIN [Concomitant]
     Indication: HYPOTENSION
     Route: 042
     Dates: start: 20111210, end: 20111214
  25. DOBUTAMIN [Concomitant]
     Indication: RENAL FAILURE
     Route: 042
     Dates: start: 20111210, end: 20111214
  26. DOBUTAMIN [Concomitant]
     Indication: HYPOTENSION
     Route: 042
     Dates: start: 20121230, end: 20130102
  27. DOBUTAMIN [Concomitant]
     Indication: RENAL FAILURE
     Route: 042
     Dates: start: 20121230, end: 20130102
  28. DIGOXIN [Concomitant]
     Indication: ATRIAL FIBRILLATION
     Route: 042
     Dates: start: 20111210, end: 20111210
  29. ENOXAPARIN [Concomitant]
     Indication: THROMBOSIS PROPHYLAXIS
     Route: 058
     Dates: start: 20111208, end: 20111213
  30. ENOXAPARIN [Concomitant]
     Indication: THROMBOSIS PROPHYLAXIS
     Route: 058
     Dates: start: 20111228, end: 20121231
  31. AMIODARON [Concomitant]
     Indication: ATRIAL FIBRILLATION
     Route: 048
     Dates: start: 20111212
  32. METOPROLOL [Concomitant]
     Indication: ATRIAL FIBRILLATION
     Route: 048
     Dates: start: 20111212
  33. AMOXILILIN+ACIDUM CLAVULANICUM [Concomitant]
     Indication: BRONCHOPNEUMONIA
     Route: 042
     Dates: start: 20111206, end: 20120120
  34. PARACETAMOL [Concomitant]
     Indication: PYREXIA
     Route: 048
     Dates: start: 20111206, end: 20111207
  35. FUROSEMID [Concomitant]
     Indication: RENAL FAILURE
     Route: 048
     Dates: start: 20110110
  36. FUROSEMID [Concomitant]
     Indication: RENAL FAILURE
     Route: 048
     Dates: start: 20110110
  37. FUROSEMID [Concomitant]
     Indication: RENAL FAILURE
     Route: 042
     Dates: start: 20111210, end: 20111211
  38. FUROSEMID [Concomitant]
     Indication: RENAL FAILURE
     Route: 042
     Dates: start: 20111210, end: 20111211
  39. CIPROFLOXACIN [Concomitant]
     Indication: BRONCHOPNEUMONIA
     Route: 042
     Dates: start: 20111210, end: 20111230
  40. CIPROFLOXACIN [Concomitant]
     Indication: SEPSIS
     Route: 042
     Dates: start: 20111210, end: 20111230
  41. CIPROFLOXACIN [Concomitant]
     Indication: BRONCHOPNEUMONIA
     Route: 042
     Dates: start: 20130101, end: 20130102
  42. CIPROFLOXACIN [Concomitant]
     Indication: SEPSIS
     Route: 042
     Dates: start: 20130101, end: 20130102
  43. PARACETAMOLUM [Concomitant]
     Indication: PYREXIA
     Dosage: AS NEEDED
     Route: 048
     Dates: start: 20111208, end: 20120128
  44. ADRENALIN [Concomitant]
     Indication: DUODENAL ULCER HAEMORRHAGE
     Dosage: ENDOSCOPIC INJECTION
     Dates: start: 20111213, end: 20111213
  45. PANTOPRAZOL [Concomitant]
     Indication: GASTROINTESTINAL HAEMORRHAGE
     Route: 048
     Dates: start: 20111213
  46. KALI CHLORIDUM [Concomitant]
     Indication: HYPOKALAEMIA
     Route: 048
     Dates: start: 20120228

REACTIONS (8)
  - Nephrogenic anaemia [Not Recovered/Not Resolved]
  - Renal failure acute [Recovered/Resolved]
  - Traumatic haematoma [Recovered/Resolved]
  - Duodenal ulcer haemorrhage [Recovered/Resolved]
  - Gastric ulcer haemorrhage [Recovered/Resolved]
  - Bronchopneumonia [Recovered/Resolved]
  - Abscess limb [Recovered/Resolved]
  - Infection [Recovered/Resolved]
